FAERS Safety Report 6490114-7 (Version None)
Quarter: 2009Q4

REPORT INFORMATION
  Report Type: 
  Country: None (occurrence: None)
  Receive Date: 20091211
  Receipt Date: 20090416
  Transmission Date: 20100525
  Serious: No
  Sender: FDA-Public Use
  Company Number: A0779199A

PATIENT
  Sex: Female

DRUGS (3)
  1. FLOVENT [Suspect]
     Indication: ASTHMA
     Dosage: 2PUFF TWICE PER DAY
     Route: 055
     Dates: start: 19950101
  2. SEREVENT [Suspect]
     Indication: ASTHMA
     Dosage: 2PUFF PER DAY
     Route: 055
  3. VERAPAMIL [Concomitant]

REACTIONS (1)
  - DYSPNOEA [None]
